FAERS Safety Report 25816933 (Version 1)
Quarter: 2025Q3

REPORT INFORMATION
  Report Type: Spontaneous
  Country: US (occurrence: None)
  Receive Date: 20250917
  Receipt Date: 20250917
  Transmission Date: 20251020
  Serious: Yes (Hospitalization)
  Sender: FDA-CTU
  Company Number: None

PATIENT
  Age: 52 Year
  Sex: Female

DRUGS (11)
  1. BOTOX [Suspect]
     Active Substance: ONABOTULINUMTOXINA
     Indication: Migraine
     Dates: start: 20180417
  2. ATENOLOL TAB 50MG [Concomitant]
  3. CIMZIA KIT [Concomitant]
  4. CYMBAL TA CAP 30MG [Concomitant]
  5. DEPAKOTE TAB 500MG DR [Concomitant]
  6. FOLIC ACID TAB1MG [Concomitant]
  7. GATTEX KIT 5MG [Concomitant]
  8. HYDROCORT CRE 0.5% [Concomitant]
  9. IMITREX TAB 25MG [Concomitant]
  10. KLONOPIN TAB 0.5MG [Concomitant]
  11. LAMICTAL TAB 25MG [Concomitant]

REACTIONS (1)
  - Hospitalisation [None]

NARRATIVE: CASE EVENT DATE: 20250901
